FAERS Safety Report 11365496 (Version 1)
Quarter: 2015Q3

REPORT INFORMATION
  Report Type: Spontaneous
  Country: US (occurrence: US)
  Receive Date: 20150811
  Receipt Date: 20150811
  Transmission Date: 20151125
  Serious: Yes (Other)
  Sender: FDA-Public Use
  Company Number: US-PROCTER_AND_GAMBLE-CIO15048195

PATIENT
  Sex: Female

DRUGS (2)
  1. CREST 3D WHITE [Suspect]
     Active Substance: SODIUM FLUORIDE
     Dosage: USED IT TWICE BEFORE FOR A QUICK RINSE; USED 3 TIMES TOTAL
     Route: 002
  2. CREST 3D WHITE [Suspect]
     Active Substance: SODIUM FLUORIDE
     Dosage: DID A LONGER RINSE FOR ABOUT 60 SECONDS; USED 3 TIMES TOTAL
     Route: 002
     Dates: start: 20150728, end: 20150728

REACTIONS (13)
  - Hypersensitivity [Recovering/Resolving]
  - Lip swelling [Recovering/Resolving]
  - Swelling face [Recovering/Resolving]
  - Gingival blister [Unknown]
  - Gingival disorder [Not Recovered/Not Resolved]
  - Lip dry [Not Recovered/Not Resolved]
  - Dry mouth [Not Recovered/Not Resolved]
  - Mouth swelling [Recovering/Resolving]
  - Gingival swelling [Recovering/Resolving]
  - Stomatitis [Not Recovered/Not Resolved]
  - Chapped lips [Not Recovered/Not Resolved]
  - Cheilitis [Not Recovered/Not Resolved]
  - Oral mucosal blistering [Unknown]

NARRATIVE: CASE EVENT DATE: 201507
